FAERS Safety Report 4817852-3 (Version None)
Quarter: 2005Q3

REPORT INFORMATION
  Report Type: 
  Country: None (occurrence: None)
  Receive Date: 20050929
  Receipt Date: 20050620
  Transmission Date: 20060218
  Serious: No
  Sender: FDA-Public Use
  Company Number: 05P-163-0303607-00

PATIENT
  Age: 44 Year
  Sex: Female
  Weight: 60.782 kg

DRUGS (9)
  1. HUMIRA [Suspect]
     Indication: RHEUMATOID ARTHRITIS
     Dosage: 40 MG, 1 IN 2 WK, SUBCUTANEOUS
     Route: 058
     Dates: start: 20050201, end: 20050401
  2. METHOTREXATE [Concomitant]
  3. PANTOPRAZOLE [Concomitant]
  4. CYMBALTA [Concomitant]
  5. LEXAPRO [Concomitant]
  6. RISPERIDONE [Concomitant]
  7. GABAPENTIN [Concomitant]
  8. OXYCOCET [Concomitant]
  9. TIZANIDINE HCL [Concomitant]

REACTIONS (1)
  - BRONCHITIS [None]
